FAERS Safety Report 8024775-8 (Version None)
Quarter: 2012Q1

REPORT INFORMATION
  Report Type: 
  Country: None (occurrence: None)
  Receive Date: 20120105
  Receipt Date: 20111228
  Transmission Date: 20120608
  Serious: Yes (Hospitalization)
  Sender: FDA-Public Use
  Company Number: US-BAXTER-2011BH040500

PATIENT
  Age: 20 Day
  Sex: Male

DRUGS (2)
  1. DIANEAL [Suspect]
     Indication: PERITONEAL DIALYSIS
     Route: 033
     Dates: start: 20111226
  2. HEPARIN [Concomitant]
     Indication: PERITONEAL DIALYSIS
     Route: 033
     Dates: start: 20111226, end: 20111226

REACTIONS (2)
  - RASH [None]
  - ANAPHYLACTIC SHOCK [None]
